FAERS Safety Report 6295580-8 (Version None)
Quarter: 2009Q3

REPORT INFORMATION
  Report Type: 
  Country: None (occurrence: None)
  Receive Date: 20090731
  Receipt Date: 20090717
  Transmission Date: 20100115
  Serious: Yes (Other)
  Sender: FDA-Public Use
  Company Number: 200907IM000359

PATIENT
  Age: 61 Year
  Sex: Female

DRUGS (4)
  1. INTERFERON GAMMA-1B [Suspect]
     Indication: MYCOSIS FUNGOIDES
     Dosage: 100 UG, 3 TIMES WEEKLY, 100 UG, 5 TIMES A WEEK
  2. VORINOSTAT [Suspect]
     Indication: MYCOSIS FUNGOIDES
     Dosage: 400 MG, DAILY, 300 MG, 5 DAYS A WEEK
  3. BEXAROTENE [Suspect]
     Dosage: 150 MG, DAILY
  4. ISOTRETINOIN [Suspect]

REACTIONS (10)
  - BONE MARROW FAILURE [None]
  - DEHYDRATION [None]
  - DIARRHOEA [None]
  - NAUSEA [None]
  - PRURITUS [None]
  - RASH PAPULAR [None]
  - SKIN FISSURES [None]
  - SKIN PLAQUE [None]
  - THROMBOCYTOPENIA [None]
  - VOMITING [None]
